FAERS Safety Report 7976705-2 (Version None)
Quarter: 2011Q4

REPORT INFORMATION
  Report Type: 
  Country: None (occurrence: None)
  Receive Date: 20111213
  Receipt Date: 20111031
  Transmission Date: 20120403
  Serious: Yes (Hospitalization)
  Sender: FDA-Public Use
  Company Number: US-AMGEN-USASP2011054377

PATIENT
  Age: 63 Year
  Sex: Female
  Weight: 73.923 kg

DRUGS (6)
  1. ENBREL [Suspect]
     Indication: RHEUMATOID ARTHRITIS
     Dosage: 50 MG, QWK
     Route: 058
     Dates: start: 20080630
  2. ARAVA [Concomitant]
     Dosage: UNK
     Dates: start: 20110620
  3. AZULFIDINE EN-TABS [Concomitant]
     Dosage: UNK
     Dates: start: 20110620
  4. NEURONTIN [Concomitant]
     Dosage: UNK
     Dates: start: 20080408
  5. DAYPRO [Concomitant]
     Dosage: UNK
     Dates: start: 20070819
  6. VICODIN ES [Concomitant]
     Dosage: UNK

REACTIONS (1)
  - GASTROENTERITIS VIRAL [None]
